FAERS Safety Report 13433292 (Version 1)
Quarter: 2017Q2

REPORT INFORMATION
  Report Type: Spontaneous
  Country: TW (occurrence: TW)
  Receive Date: 20170412
  Receipt Date: 20170412
  Transmission Date: 20170830
  Serious: Yes (Life-Threatening, Other)
  Sender: FDA-Public Use
  Company Number: TW-PFIZER INC-07H-153-0312084-00

PATIENT
  Age: 47 Year
  Sex: Male
  Weight: 65 kg

DRUGS (5)
  1. RINGER-LACTATE SOLUTION [Concomitant]
     Indication: MEDICATION DILUTION
     Dosage: FREQ: NOT REPORTED
  2. ROCURONIUM [Concomitant]
     Active Substance: ROCURONIUM BROMIDE
     Indication: ENDOTRACHEAL INTUBATION
     Dosage: FREQ: NOT REPORTED, NOT REPORTED
  3. FENTANYL. [Concomitant]
     Active Substance: FENTANYL
     Indication: INDUCTION OF ANAESTHESIA
     Dosage: UNK
     Route: 042
  4. CLINDAMYCIN PHOSPHATE. [Suspect]
     Active Substance: CLINDAMYCIN PHOSPHATE
     Indication: ANTIBIOTIC PROPHYLAXIS
     Dosage: FREQ: NOT REPORTED
  5. THIAMYLAL [Concomitant]
     Active Substance: THIAMYLAL
     Indication: INDUCTION OF ANAESTHESIA
     Dosage: FREQ: NOT REPORTED
     Route: 042

REACTIONS (1)
  - Anaphylactic shock [Recovered/Resolved]
